FAERS Safety Report 5265363-6 (Version None)
Quarter: 2007Q1

REPORT INFORMATION
  Report Type: 
  Country: None (occurrence: None)
  Receive Date: 20070314
  Receipt Date: 20070221
  Transmission Date: 20070707
  Serious: Yes (Death, Hospitalization, Other)
  Sender: FDA-Public Use
  Company Number: US-PFIZER INC-2007014561

PATIENT
  Sex: Male
  Weight: 81.6 kg

DRUGS (1)
  1. CELEBREX [Suspect]

REACTIONS (2)
  - DEATH [None]
  - GASTRIC HAEMORRHAGE [None]
